FAERS Safety Report 24407798 (Version 2)
Quarter: 2025Q4

REPORT INFORMATION
  Report Type: Spontaneous
  Country: US (occurrence: US)
  Receive Date: 20241007
  Receipt Date: 20251204
  Transmission Date: 20260118
  Serious: No
  Sender: SANOFI AVENTIS
  Company Number: US-SA-2024SA286398

PATIENT
  Age: 73 Year
  Sex: Female

DRUGS (15)
  1. DUPIXENT [Suspect]
     Active Substance: DUPILUMAB
     Indication: Asthma
     Dosage: 300 MG, QOW
     Route: 058
     Dates: start: 202311
  2. BUPROPION [Concomitant]
     Active Substance: BUPROPION
  3. CLOBETASOL [Concomitant]
     Active Substance: CLOBETASOL
  4. DORZOLAMIDE [Concomitant]
     Active Substance: DORZOLAMIDE
  5. EPINEPHRINE [Concomitant]
     Active Substance: EPINEPHRINE
  6. ESTRADIOL [Concomitant]
     Active Substance: ESTRADIOL
  7. GABAPENTIN [Concomitant]
     Active Substance: GABAPENTIN
  8. HYDROCHLOROTHIAZIDE [Concomitant]
     Active Substance: HYDROCHLOROTHIAZIDE
  9. MONTELUKAST [Concomitant]
     Active Substance: MONTELUKAST
  10. OMEPRAZOLE [Concomitant]
     Active Substance: OMEPRAZOLE
  11. WIXELA INHUB [Concomitant]
     Active Substance: FLUTICASONE PROPIONATE\SALMETEROL XINAFOATE
  12. NAPROXEN SODIUM [Concomitant]
     Active Substance: NAPROXEN SODIUM
     Dosage: UNK
  13. XYZAL [Concomitant]
     Active Substance: LEVOCETIRIZINE DIHYDROCHLORIDE
     Dosage: UNK
  14. CALCIUM\VITAMIN D [Concomitant]
     Active Substance: CALCIUM\VITAMIN D
     Dosage: UNK
  15. FISH OIL [Concomitant]
     Active Substance: FISH OIL
     Dosage: UNK

REACTIONS (2)
  - Injection site pain [Not Recovered/Not Resolved]
  - Product storage error [Unknown]
